FAERS Safety Report 8095255-9 (Version None)
Quarter: 2012Q1

REPORT INFORMATION
  Report Type: 
  Country: None (occurrence: None)
  Receive Date: 20120129
  Receipt Date: 20111229
  Transmission Date: 20120608
  Serious: No
  Sender: FDA-Public Use
  Company Number: US-ABBOTT-11P-163-0887831-00

PATIENT
  Age: 52 Year
  Sex: Female

DRUGS (6)
  1. HUMIRA [Suspect]
     Indication: RHEUMATOID ARTHRITIS
     Dates: start: 20111001
  2. D3 [Concomitant]
     Indication: VITAMIN SUPPLEMENTATION
  3. FISH OIL [Concomitant]
     Indication: PRODUCT USED FOR UNKNOWN INDICATION
  4. IBUPROFEN (ADVIL) [Concomitant]
     Indication: PAIN
  5. PROBIOTICS [Concomitant]
     Indication: PRODUCT USED FOR UNKNOWN INDICATION
  6. MULTI-VITAMINS [Concomitant]
     Indication: VITAMIN SUPPLEMENTATION

REACTIONS (9)
  - SINUSITIS [None]
  - INJECTION SITE PAPULE [None]
  - INJECTION SITE PAIN [None]
  - INJECTION SITE WARMTH [None]
  - WRONG TECHNIQUE IN DRUG USAGE PROCESS [None]
  - INJECTION SITE PRURITUS [None]
  - INJECTION SITE SWELLING [None]
  - INJECTION SITE REACTION [None]
  - DRUG EFFECT DECREASED [None]
